FAERS Safety Report 6299084-8 (Version None)
Quarter: 2009Q3

REPORT INFORMATION
  Report Type: 
  Country: None (occurrence: None)
  Receive Date: 20090804
  Receipt Date: 20090728
  Transmission Date: 20100115
  Serious: Yes (Other)
  Sender: FDA-Public Use
  Company Number: 2009JP002348

PATIENT
  Age: 87 Year
  Sex: Female
  Weight: 42 kg

DRUGS (7)
  1. VESICARE [Suspect]
     Indication: HYPERTONIC BLADDER
     Dosage: 5 MG, UID/QD, ORAL
     Route: 048
     Dates: start: 20090306, end: 20090417
  2. NORVASC [Concomitant]
  3. BUFFERIN [Concomitant]
  4. AMPLIT (LOFEPRAMINE HYDROCHLORIDE) [Concomitant]
  5. DOGMATYL (SULPIRIDE) [Concomitant]
  6. RIZE (CLOTIAZEPAM) [Concomitant]
  7. POLARAMINE [Concomitant]

REACTIONS (5)
  - ANXIETY [None]
  - DEMENTIA [None]
  - DEPRESSION [None]
  - PSYCHIATRIC SYMPTOM [None]
  - WEIGHT DECREASED [None]
